FAERS Safety Report 6418611-0 (Version None)
Quarter: 2009Q4

REPORT INFORMATION
  Report Type: 
  Country: None (occurrence: None)
  Receive Date: 20091028
  Receipt Date: 20091023
  Transmission Date: 20100525
  Serious: Yes (Death, Other)
  Sender: FDA-Public Use
  Company Number: PHHY2009BR46063

PATIENT

DRUGS (3)
  1. FORASEQ [Suspect]
     Dosage: 12/400 MCG
  2. FORMOTEROL W/BUDESONIDE [Concomitant]
  3. ENALAPRIL [Concomitant]

REACTIONS (3)
  - CONCOMITANT DISEASE PROGRESSION [None]
  - LUNG NEOPLASM MALIGNANT [None]
  - WEIGHT DECREASED [None]
